FAERS Safety Report 5315510-2 (Version None)
Quarter: 2007Q2

REPORT INFORMATION
  Report Type: 
  Country: None (occurrence: None)
  Receive Date: 20070503
  Receipt Date: 20070426
  Transmission Date: 20071010
  Serious: Yes (Other)
  Sender: FDA-Public Use
  Company Number: HQWYE863826APR07

PATIENT
  Sex: Female

DRUGS (1)
  1. TRIQUILAR [Suspect]
     Dosage: UNKNOWN
     Route: 048
     Dates: start: 19920101

REACTIONS (1)
  - HEPATITIS TOXIC [None]
